FAERS Safety Report 7064847-8 (Version None)
Quarter: 2010Q4

REPORT INFORMATION
  Report Type: 
  Country: None (occurrence: None)
  Receive Date: 20101027
  Receipt Date: 19870722
  Transmission Date: 20110411
  Serious: Yes (Death, Life-Threatening)
  Sender: FDA-Public Use
  Company Number: DE-ROCHE-870314169001

PATIENT
  Sex: Male
  Weight: 1.1 kg

DRUGS (5)
  1. DORMICUM (INJ) [Suspect]
     Indication: PREMEDICATION
     Route: 042
     Dates: start: 19870417, end: 19870417
  2. DORMICUM (INJ) [Suspect]
     Route: 042
     Dates: start: 19870425, end: 19870425
  3. DOBUTAMINE [Concomitant]
     Route: 042
     Dates: start: 19870413, end: 19870418
  4. AMPICILLIN [Concomitant]
     Route: 042
     Dates: start: 19870413, end: 19870423
  5. GENTAMICIN [Concomitant]
     Route: 065
     Dates: start: 19870413, end: 19870423

REACTIONS (2)
  - CLONIC CONVULSION [None]
  - DEATH [None]
